FAERS Safety Report 9518980 (Version 1)
Quarter: 2013Q3

REPORT INFORMATION
  Report Type: Report from Study
  Country: GR (occurrence: GR)
  Receive Date: 20130912
  Receipt Date: 20130912
  Transmission Date: 20140515
  Serious: Yes (Death, Hospitalization)
  Sender: FDA-Public Use
  Company Number: GR-ELI_LILLY_AND_COMPANY-GR201106005189

PATIENT
  Age: 45 Year
  Sex: Male
  Weight: 90 kg

DRUGS (4)
  1. NECITUMUMAB (11F8) (LY3012211) [Suspect]
     Dosage: 800 MG, UNK
     Dates: start: 20110324
  2. GEMCITABINE HYDROCHLORIDE [Suspect]
     Dosage: 2350 MG, UNK
     Dates: start: 20110324
  3. CISPLATIN [Suspect]
     Dosage: 140 MG, UNK
     Dates: start: 20110324
  4. DURAGESIC [Concomitant]
     Dosage: UNK
     Dates: start: 20110309

REACTIONS (2)
  - Cardio-respiratory arrest [Fatal]
  - Renal failure acute [Not Recovered/Not Resolved]
